FAERS Safety Report 7232188-1 (Version None)
Quarter: 2011Q1

REPORT INFORMATION
  Report Type: 
  Country: None (occurrence: None)
  Receive Date: 20110119
  Receipt Date: 20110107
  Transmission Date: 20110831
  Serious: No
  Sender: FDA-Public Use
  Company Number: US-BIOGENIDEC-2011BI001140

PATIENT
  Sex: Female

DRUGS (1)
  1. TYSABRI [Suspect]
     Indication: MULTIPLE SCLEROSIS
     Route: 042
     Dates: start: 20101123

REACTIONS (6)
  - CONTUSION [None]
  - ARTHRALGIA [None]
  - GAIT DISTURBANCE [None]
  - VITAMIN D DEFICIENCY [None]
  - PLATELET COUNT DECREASED [None]
  - JOINT SWELLING [None]
